FAERS Safety Report 5888575-7 (Version None)
Quarter: 2008Q3

REPORT INFORMATION
  Report Type: 
  Country: None (occurrence: None)
  Receive Date: 20080918
  Receipt Date: 20080912
  Transmission Date: 20090109
  Serious: Yes (Life-Threatening, Hospitalization, Other)
  Sender: FDA-Public Use
  Company Number: US-BAYER-200833565NA

PATIENT
  Age: 81 Year
  Sex: Female
  Weight: 59 kg

DRUGS (40)
  1. SORAFENIB OR PLACEBO [Suspect]
     Indication: BREAST CANCER METASTATIC
     Dosage: TOTAL DAILY DOSE: 800 MG  UNIT DOSE: 200 MG
     Route: 048
     Dates: start: 20071214, end: 20080104
  2. TAXOL [Suspect]
     Indication: BREAST CANCER METASTATIC
     Dosage: TOTAL DAILY DOSE: 126 MG  UNIT DOSE: 90 MG/M2
     Route: 042
     Dates: start: 20071214, end: 20071214
  3. TAXOL [Suspect]
     Dosage: TOTAL DAILY DOSE: 126 MG  UNIT DOSE: 90 MG/M2
     Route: 042
     Dates: start: 20071220, end: 20071220
  4. TAXOL [Suspect]
     Dosage: TOTAL DAILY DOSE: 126 MG  UNIT DOSE: 90 MG/M2
     Route: 042
     Dates: start: 20071228, end: 20071228
  5. GLUCOPHAGE [Concomitant]
     Indication: TYPE 2 DIABETES MELLITUS
     Dosage: TOTAL DAILY DOSE: 1500 MG  UNIT DOSE: 1500 MG
     Route: 048
  6. DIABETA [Concomitant]
     Indication: TYPE 2 DIABETES MELLITUS
     Dosage: TOTAL DAILY DOSE: 5 MG  UNIT DOSE: 5 MG
     Route: 048
  7. ACTOS [Concomitant]
     Indication: TYPE 2 DIABETES MELLITUS
     Dosage: TOTAL DAILY DOSE: 30 MG  UNIT DOSE: 30 MG
     Route: 048
  8. NORVASC [Concomitant]
     Indication: HYPERTENSION
     Dosage: TOTAL DAILY DOSE: 5 MG  UNIT DOSE: 5 MG
     Route: 048
  9. ACCUPRIL [Concomitant]
     Indication: HYPERTENSION
     Dosage: TOTAL DAILY DOSE: 5 MG  UNIT DOSE: 5 MG
     Route: 048
  10. MULTI-VITAMIN [Concomitant]
     Indication: VITAMIN SUPPLEMENTATION
     Dosage: TOTAL DAILY DOSE: 1 DF  UNIT DOSE: 1 DF
     Route: 048
  11. VITAMIN B COMPLEX CAP [Concomitant]
     Dosage: TOTAL DAILY DOSE: 1 DF  UNIT DOSE: 1 DF
     Route: 048
  12. ASPIRIN [Concomitant]
     Indication: PROPHYLAXIS
     Dosage: TOTAL DAILY DOSE: 81 MG  UNIT DOSE: 81 MG
     Route: 048
     Dates: end: 20080101
  13. ZOCOR [Concomitant]
     Dosage: TOTAL DAILY DOSE: 20 MG
  14. REGULAR INSULIN [Concomitant]
  15. CELEBREX [Concomitant]
     Dosage: TOTAL DAILY DOSE: 200 MG
     Route: 048
  16. MELOXICAM [Concomitant]
  17. LISINOPRIL [Concomitant]
     Dosage: TOTAL DAILY DOSE: 5 MG
     Route: 048
  18. PHENERGAN HCL [Concomitant]
  19. QUININE SULFATE [Concomitant]
     Indication: MUSCLE SPASMS
  20. QUININE SULFATE [Concomitant]
     Dosage: TOTAL DAILY DOSE: 260 MG
  21. LYRICA [Concomitant]
     Indication: NEUROPATHY PERIPHERAL
     Dosage: TOTAL DAILY DOSE: 150 MG
     Route: 048
  22. LYRICA [Concomitant]
     Dosage: TOTAL DAILY DOSE: 75 MG
     Route: 048
  23. FLEXERIL [Concomitant]
     Dosage: TOTAL DAILY DOSE: 5 MG
     Route: 048
  24. TOPROL-XL [Concomitant]
     Dosage: TOTAL DAILY DOSE: 25 MG  UNIT DOSE: 25 MG
     Route: 048
  25. TOPROL-XL [Concomitant]
     Dates: start: 20071201
  26. PLAVIX [Concomitant]
     Dosage: TOTAL DAILY DOSE: 75 MG
     Route: 048
  27. COLACE [Concomitant]
  28. LASIX [Concomitant]
     Dosage: TOTAL DAILY DOSE: 20 MG
     Route: 048
  29. LASIX [Concomitant]
     Dosage: TOTAL DAILY DOSE: 40 MG
     Dates: start: 20080101
  30. ALDACTONE [Concomitant]
     Dosage: TOTAL DAILY DOSE: 25 MG
     Route: 048
  31. METFORMIN HCL [Concomitant]
     Indication: DIABETES MELLITUS
     Dosage: TOTAL DAILY DOSE: 1000 MG
     Route: 048
  32. GLYBURIDE [Concomitant]
     Dosage: TOTAL DAILY DOSE: 10 MG
     Route: 048
  33. GLYBURIDE [Concomitant]
     Dosage: TOTAL DAILY DOSE: 5 MG
     Route: 048
  34. ROBITUSSIN COUGH SYRUP [Concomitant]
  35. VICODIN [Concomitant]
  36. COMPAZINE [Concomitant]
     Indication: NAUSEA
     Route: 048
  37. COMPAZINE [Concomitant]
     Route: 048
  38. HYDROMORPHONE HCL [Concomitant]
     Indication: PAIN
     Route: 048
  39. HYDROMORPHONE HCL [Concomitant]
     Route: 048
  40. BROMASIN [Concomitant]
     Dosage: TOTAL DAILY DOSE: 25 MG
     Route: 048

REACTIONS (7)
  - ANAEMIA [None]
  - DEHYDRATION [None]
  - GASTROINTESTINAL HAEMORRHAGE [None]
  - GASTROINTESTINAL ULCER [None]
  - HYPERGLYCAEMIA [None]
  - MYOCARDIAL INFARCTION [None]
  - PNEUMONIA [None]
